FAERS Safety Report 20495781 (Version 2)
Quarter: 2022Q2

REPORT INFORMATION
  Report Type: Spontaneous
  Country: US (occurrence: US)
  Receive Date: 20220221
  Receipt Date: 20220426
  Transmission Date: 20220721
  Serious: Yes (Hospitalization, Other)
  Sender: FDA-Public Use
  Company Number: US-BAYER-2022A022992

PATIENT
  Age: 86 Year
  Sex: Female

DRUGS (2)
  1. BAYER LOW DOSE [Suspect]
     Active Substance: ASPIRIN
     Indication: Thrombosis prophylaxis
     Dosage: 1 DF, QD(DAILY FOR 15 YEARS)
     Route: 048
     Dates: start: 20060101, end: 20210905
  2. BAYER LOW DOSE [Suspect]
     Active Substance: ASPIRIN
     Indication: Thrombosis prophylaxis
     Dosage: 1 DF, QD (DAILY FOR 15 YEAR)
     Route: 048
     Dates: start: 2007, end: 20210804

REACTIONS (7)
  - Epistaxis [Recovered/Resolved]
  - Epistaxis [Recovered/Resolved]
  - Epistaxis [Recovered/Resolved]
  - Hypomania [Recovered/Resolved]
  - Incorrect product administration duration [None]
  - Incorrect dose administered [None]
  - Blood loss anaemia [Recovered/Resolved]

NARRATIVE: CASE EVENT DATE: 20210804
